FAERS Safety Report 19312279 (Version 1)
Quarter: 2021Q2

REPORT INFORMATION
  Report Type: Report from Study
  Country: JP (occurrence: JP)
  Receive Date: 20210527
  Receipt Date: 20210527
  Transmission Date: 20210717
  Serious: Yes (Life-Threatening, Hospitalization)
  Sender: FDA-Public Use
  Company Number: JP-TEVA-2021-JP-1917415

PATIENT
  Sex: Male

DRUGS (3)
  1. CISPLATIN. [Suspect]
     Active Substance: CISPLATIN
     Indication: GERM CELL CANCER METASTATIC
     Dosage: ON DAYS 1 AND 8, EVERY 3 WEEKS
     Route: 042
  2. PACLITAXEL. [Suspect]
     Active Substance: PACLITAXEL
     Indication: GERM CELL CANCER METASTATIC
     Dosage: ON DAYS 1 AND 8, EVERY 3 WEEKS
     Route: 042
  3. GEMCITABINE. [Suspect]
     Active Substance: GEMCITABINE
     Indication: GERM CELL CANCER METASTATIC
     Dosage: ON DAYS 1 AND 8, EVERY 3 WEEKS
     Route: 042

REACTIONS (3)
  - Nephropathy toxic [Recovered/Resolved]
  - Sepsis [Recovered/Resolved]
  - Hepatotoxicity [Recovered/Resolved]
